FAERS Safety Report 4312038-3 (Version None)
Quarter: 2004Q1

REPORT INFORMATION
  Report Type: 
  Country: None (occurrence: None)
  Receive Date: 20040303
  Receipt Date: 20040227
  Transmission Date: 20041129
  Serious: Yes (Life-Threatening)
  Sender: FDA-Public Use
  Company Number: 2004201135JP

PATIENT
  Age: 70 Year
  Sex: Male

DRUGS (1)
  1. CAMPTOSAR [Suspect]
     Indication: COLORECTAL CANCER
     Dosage: 150 MG/M2, CYCLIC, IV DRIP
     Route: 041
     Dates: start: 20040218, end: 20040218

REACTIONS (3)
  - DEFAECATION URGENCY [None]
  - HYPERHIDROSIS [None]
  - INTESTINAL PERFORATION [None]
